FAERS Safety Report 15320660 (Version 1)
Quarter: 2018Q3

REPORT INFORMATION
  Report Type: Spontaneous
  Country: US (occurrence: US)
  Receive Date: 20180827
  Receipt Date: 20180827
  Transmission Date: 20181010
  Serious: No
  Sender: FDA-Public Use
  Company Number: US-SHIRE-US201832872

PATIENT

DRUGS (1)
  1. ELAPRASE [Suspect]
     Active Substance: IDURSULFASE
     Indication: MUCOPOLYSACCHARIDOSIS II
     Dosage: 5 DF, 1X/WEEK
     Route: 042
     Dates: start: 20070126

REACTIONS (2)
  - Sleep deficit [Not Recovered/Not Resolved]
  - Incontinence [Not Recovered/Not Resolved]
